FAERS Safety Report 15374572 (Version 1)
Quarter: 2018Q3

REPORT INFORMATION
  Report Type: Spontaneous
  Country: US (occurrence: US)
  Receive Date: 20180906
  Receipt Date: 20180906
  Transmission Date: 20181010
  Serious: Yes (Other)
  Sender: FDA-Public Use
  Company Number: None

PATIENT
  Age: 61 Year
  Sex: Female
  Weight: 75.15 kg

DRUGS (4)
  1. ARMOUR THYROID [Concomitant]
     Active Substance: THYROID, PORCINE
  2. VITAMIN C [Concomitant]
     Active Substance: ASCORBIC ACID
  3. UCERIS [Suspect]
     Active Substance: BUDESONIDE
     Indication: COLITIS ULCERATIVE
     Dosage: QUANTITY:66.8 DF DOSAGE FORM;?
     Route: 054
     Dates: start: 20180701, end: 20180905
  4. REMICADE [Concomitant]
     Active Substance: INFLIXIMAB

REACTIONS (1)
  - Infection [None]

NARRATIVE: CASE EVENT DATE: 20180703
